FAERS Safety Report 6232752-2 (Version None)
Quarter: 2009Q2

REPORT INFORMATION
  Report Type: 
  Country: None (occurrence: None)
  Receive Date: 20090617
  Receipt Date: 20090615
  Transmission Date: 20091009
  Serious: Yes (Other)
  Sender: FDA-Public Use
  Company Number: CH-ROXANE LABORATORIES, INC.-2009-RO-00586RO

PATIENT
  Age: 7 Year
  Sex: Male

DRUGS (2)
  1. METHOTREXATE [Suspect]
     Indication: LYMPHOMA
     Route: 037
  2. CYTARABINE [Suspect]
     Indication: LYMPHOMA

REACTIONS (3)
  - ARACHNOIDITIS [None]
  - CEREBELLAR ATROPHY [None]
  - NEUROTOXICITY [None]
